FAERS Safety Report 6557118-7 (Version None)
Quarter: 2010Q1

REPORT INFORMATION
  Report Type: 
  Country: None (occurrence: None)
  Receive Date: 20100126
  Receipt Date: 20100111
  Transmission Date: 20100710
  Serious: Yes (Death)
  Sender: FDA-Public Use
  Company Number: 004699

PATIENT
  Age: 50 Year
  Sex: Female

DRUGS (6)
  1. ACETAMINOPHEN AND HYDROCODONE BITARTRATE [Suspect]
  2. ACETAMINOPHEN [Suspect]
  3. LORAZEPAM [Suspect]
  4. GABAPENTIN [Suspect]
  5. HYDROXYZINE [Suspect]
  6. HYOSCYAMINE [Suspect]

REACTIONS (1)
  - COMPLETED SUICIDE [None]
